FAERS Safety Report 7718572-8 (Version None)
Quarter: 2011Q3

REPORT INFORMATION
  Report Type: 
  Country: None (occurrence: None)
  Receive Date: 20110830
  Receipt Date: 20110816
  Transmission Date: 20111222
  Serious: Yes (Hospitalization)
  Sender: FDA-Public Use
  Company Number: US-ELI_LILLY_AND_COMPANY-US201107003485

PATIENT
  Age: 68 Year
  Sex: Female

DRUGS (7)
  1. POTASSIUM [Concomitant]
  2. LEVOXYL [Concomitant]
  3. LOMOTIL [Concomitant]
  4. LAMOTRIGINE [Concomitant]
  5. LASIX [Concomitant]
     Dosage: 40 MG, UNK
  6. FORTEO [Suspect]
     Indication: OSTEOPOROSIS
     Dosage: 20 UG, QD
     Route: 065
     Dates: start: 20110601
  7. FOLIC ACID [Concomitant]

REACTIONS (2)
  - KNEE ARTHROPLASTY [None]
  - FALL [None]
